FAERS Safety Report 5742362-9 (Version None)
Quarter: 2008Q2

REPORT INFORMATION
  Report Type: 
  Country: None (occurrence: None)
  Receive Date: 20080515
  Receipt Date: 20080506
  Transmission Date: 20081010
  Serious: Yes (Other)
  Sender: FDA-Public Use
  Company Number: 200805IM000151

PATIENT
  Age: 84 Year
  Sex: Female

DRUGS (2)
  1. INTERFERON GAMMA-1B [Suspect]
     Indication: PEMPHIGOID
     Dosage: 200000 UNITS, QD, INTRAVENOUS
     Route: 042
  2. PREDNISOLONE [Concomitant]

REACTIONS (2)
  - PYREXIA [None]
  - RENAL FAILURE ACUTE [None]
